FAERS Safety Report 5564491-5 (Version None)
Quarter: 2007Q4

REPORT INFORMATION
  Report Type: 
  Country: None (occurrence: None)
  Receive Date: 20071218
  Receipt Date: 20071211
  Transmission Date: 20080405
  Serious: No
  Sender: FDA-Public Use
  Company Number: GB-ELI_LILLY_AND_COMPANY-GB200712002620

PATIENT
  Sex: Male

DRUGS (2)
  1. OLANZAPINE [Suspect]
     Dosage: 12.5 MG, UNK
     Dates: start: 20060101
  2. SIMVASTATIN [Concomitant]
     Indication: BLOOD CHOLESTEROL

REACTIONS (5)
  - DIZZINESS [None]
  - MOBILITY DECREASED [None]
  - SOMNOLENCE [None]
  - WEIGHT INCREASED [None]
  - WHITE BLOOD CELL COUNT INCREASED [None]
